FAERS Safety Report 17692139 (Version 5)
Quarter: 2023Q1

REPORT INFORMATION
  Report Type: Spontaneous
  Country: US (occurrence: US)
  Receive Date: 20200422
  Receipt Date: 20230213
  Transmission Date: 20230418
  Serious: Yes (Disabling, Other)
  Sender: FDA-Public Use
  Company Number: US-PFIZER INC-2020155100

PATIENT
  Age: 58 Year
  Sex: Female

DRUGS (1)
  1. XELJANZ XR [Suspect]
     Active Substance: TOFACITINIB CITRATE
     Dosage: 11 MG

REACTIONS (8)
  - Drug dependence [Unknown]
  - Peripheral swelling [Not Recovered/Not Resolved]
  - Joint swelling [Unknown]
  - Product dose omission issue [Unknown]
  - Pain [Unknown]
  - Crying [Unknown]
  - Migraine [Unknown]
  - Pain in extremity [Unknown]

NARRATIVE: CASE EVENT DATE: 20230207
